FAERS Safety Report 24909817 (Version 2)
Quarter: 2025Q2

REPORT INFORMATION
  Report Type: Spontaneous
  Country: US (occurrence: US)
  Receive Date: 20250131
  Receipt Date: 20250403
  Transmission Date: 20250716
  Serious: No
  Sender: FDC LIMITED
  Company Number: US-FDC-2024USSPO00962

PATIENT
  Age: 79 Year
  Sex: Male
  Weight: 115 kg

DRUGS (3)
  1. TIMOLOL MALEATE [Suspect]
     Active Substance: TIMOLOL MALEATE
     Indication: Open angle glaucoma
     Dosage: 1 DROP IN EACH EYE
     Route: 047
     Dates: start: 20241224, end: 20241228
  2. Eydelto eye drops [Concomitant]
     Indication: Product used for unknown indication
     Route: 065
  3. Cobrinzo eye drops [Concomitant]
     Indication: Product used for unknown indication
     Dosage: IN BOTH EYES
     Route: 047

REACTIONS (3)
  - Ocular hyperaemia [Recovered/Resolved]
  - Eye pruritus [Recovered/Resolved]
  - Lacrimation increased [Recovered/Resolved]

NARRATIVE: CASE EVENT DATE: 20241225
